FAERS Safety Report 20622966 (Version 2)
Quarter: 2022Q1

REPORT INFORMATION
  Report Type: Spontaneous
  Country: AU (occurrence: AU)
  Receive Date: 20220322
  Receipt Date: 20220324
  Transmission Date: 20220423
  Serious: Yes (Other)
  Sender: FDA-Public Use
  Company Number: AU-BAYER-2022A035978

PATIENT
  Sex: Female

DRUGS (1)
  1. MIRENA [Suspect]
     Active Substance: LEVONORGESTREL
     Dosage: 20?G/DAY
     Route: 015

REACTIONS (11)
  - Device breakage [None]
  - Genital haemorrhage [None]
  - Abdominal pain [None]
  - Back pain [None]
  - Fatigue [None]
  - Mood swings [None]
  - Dyspareunia [None]
  - Nausea [None]
  - Decreased appetite [None]
  - Abdominal distension [None]
  - Fluid retention [None]

NARRATIVE: CASE EVENT DATE: 20200101
